FAERS Safety Report 25925177 (Version 1)
Quarter: 2025Q4

REPORT INFORMATION
  Report Type: Spontaneous
  Country: US (occurrence: None)
  Receive Date: 20251013
  Receipt Date: 20251013
  Transmission Date: 20260117
  Serious: Yes (Other)
  Sender: FDA-CTU
  Company Number: None

PATIENT
  Age: 36 Year
  Sex: Male
  Weight: 85.5 kg

DRUGS (2)
  1. SELARSDI [Suspect]
     Active Substance: USTEKINUMAB-AEKN
     Indication: Crohn^s disease
     Dates: start: 20250922, end: 20250922
  2. VITAMIN D [Concomitant]
     Active Substance: VITAMIN D NOS

REACTIONS (12)
  - Fatigue [None]
  - Headache [None]
  - Arthralgia [None]
  - Myalgia [None]
  - Brain fog [None]
  - Arthralgia [None]
  - Arthralgia [None]
  - Flushing [None]
  - Peripheral swelling [None]
  - Movement disorder [None]
  - Arthralgia [None]
  - Back pain [None]

NARRATIVE: CASE EVENT DATE: 20250922
